FAERS Safety Report 7400198-7 (Version None)
Quarter: 2011Q2

REPORT INFORMATION
  Report Type: 
  Country: None (occurrence: None)
  Receive Date: 20110407
  Receipt Date: 20110330
  Transmission Date: 20111010
  Serious: Yes (Death)
  Sender: FDA-Public Use
  Company Number: EC-ROCHE-768305

PATIENT
  Sex: Female
  Weight: 59.4 kg

DRUGS (3)
  1. FLUOROURACIL [Concomitant]
     Indication: COLORECTAL CANCER
     Dosage: DOSE 425 MG/M2/ EVERYDAY.
     Route: 042
     Dates: start: 20090125
  2. AVASTIN [Suspect]
     Indication: COLORECTAL CANCER
     Route: 042
     Dates: start: 20090125
  3. LEUCOVORIN [Concomitant]
     Indication: COLORECTAL CANCER
     Dosage: DOSE: 20 MG/M2 DAY
     Route: 042
     Dates: start: 20090206

REACTIONS (1)
  - CARDIO-RESPIRATORY ARREST [None]
